FAERS Safety Report 16873788 (Version 1)
Quarter: 2019Q4

REPORT INFORMATION
  Report Type: Report from Study
  Country: None (occurrence: US)
  Receive Date: 20191001
  Receipt Date: 20191001
  Transmission Date: 20200122
  Serious: Yes (Hospitalization)
  Sender: FDA-Public Use
  Company Number: US-BIOVITRUM-2019US3180

PATIENT
  Age: 6 Year
  Sex: Female

DRUGS (1)
  1. KINERET [Suspect]
     Active Substance: ANAKINRA
     Indication: PYREXIA
     Route: 058
     Dates: start: 20190828

REACTIONS (3)
  - Off label use [Not Recovered/Not Resolved]
  - Cellulitis [Unknown]
  - Lymphadenitis [Unknown]

NARRATIVE: CASE EVENT DATE: 20190828
